FAERS Safety Report 17045177 (Version 2)
Quarter: 2019Q4

REPORT INFORMATION
  Report Type: Report from Study
  Country: ES (occurrence: ES)
  Receive Date: 20191118
  Receipt Date: 20191126
  Transmission Date: 20200122
  Serious: Yes (Hospitalization)
  Sender: FDA-Public Use
  Company Number: ES-PFIZER INC-2019331408

PATIENT
  Age: 76 Year
  Sex: Male
  Weight: 58 kg

DRUGS (6)
  1. GEMCITABINE HYDROCHLORIDE. [Suspect]
     Active Substance: GEMCITABINE HYDROCHLORIDE
     Indication: TRANSITIONAL CELL CARCINOMA
     Dosage: 1000 MG/M2, EVERY 3 WEEKS (D1/D8)
     Route: 042
     Dates: start: 20190527
  2. CARBOPLATIN. [Suspect]
     Active Substance: CARBOPLATIN
     Dosage: 253.68 MG, UNK
     Route: 042
     Dates: start: 20190628, end: 20190628
  3. AVELUMAB [Suspect]
     Active Substance: AVELUMAB
     Indication: TRANSITIONAL CELL CARCINOMA
     Dosage: 10 MG/M2, EVERY 3 WEEKS (RECEIVED 4 CYCLES PRIOR TO EVENT)
     Route: 042
     Dates: start: 20190423
  4. GEMCITABINE HYDROCHLORIDE. [Suspect]
     Active Substance: GEMCITABINE HYDROCHLORIDE
     Dosage: 1668.33 MG, UNK
     Route: 042
     Dates: start: 20190708, end: 20190708
  5. AVELUMAB [Suspect]
     Active Substance: AVELUMAB
     Dosage: 600 MG, UNK
     Route: 042
     Dates: start: 20190715, end: 20190715
  6. CARBOPLATIN. [Suspect]
     Active Substance: CARBOPLATIN
     Indication: TRANSITIONAL CELL CARCINOMA
     Dosage: AUC 5 (RECEIVED 4 (2) CYCLES PRIOR TO EVENT)
     Route: 042
     Dates: start: 20190527

REACTIONS (1)
  - Bacteraemia [Recovered/Resolved]

NARRATIVE: CASE EVENT DATE: 20190722
